FAERS Safety Report 7281546-8 (Version None)
Quarter: 2011Q1

REPORT INFORMATION
  Report Type: 
  Country: None (occurrence: None)
  Receive Date: 20110208
  Receipt Date: 20110128
  Transmission Date: 20110831
  Serious: Yes (Other)
  Sender: FDA-Public Use
  Company Number: PHHY2010RU81088

PATIENT
  Age: 55 Year
  Sex: Female

DRUGS (3)
  1. VITRUM [Concomitant]
     Indication: OSTEOPOROSIS
     Dosage: 2 TABS DAILY
     Dates: start: 20090101
  2. ACLASTA [Suspect]
     Indication: OSTEOPOROSIS
     Dosage: 5 MG
     Dates: start: 20091201
  3. CALCIUM D3 [Concomitant]
     Indication: OSTEOPOROSIS
     Dosage: 2 TABS DAILY

REACTIONS (2)
  - RADIUS FRACTURE [None]
  - PYREXIA [None]
